FAERS Safety Report 6005254-6 (Version None)
Quarter: 2008Q4

REPORT INFORMATION
  Report Type: 
  Country: None (occurrence: None)
  Receive Date: 20081216
  Receipt Date: 20071203
  Transmission Date: 20090506
  Serious: No
  Sender: FDA-Public Use
  Company Number: US-AMGEN-KDL255244

PATIENT
  Sex: Female

DRUGS (4)
  1. ENBREL [Suspect]
     Indication: RHEUMATOID ARTHRITIS
     Route: 058
     Dates: start: 20051213
  2. PLAQUENIL [Concomitant]
     Dates: start: 20050901
  3. SULFASALAZINE [Concomitant]
     Dates: start: 20050901
  4. ALEVE [Concomitant]

REACTIONS (2)
  - ARTHRALGIA [None]
  - INJECTION SITE HAEMATOMA [None]
